FAERS Safety Report 6765719-6 (Version None)
Quarter: 2010Q2

REPORT INFORMATION
  Report Type: 
  Country: None (occurrence: None)
  Receive Date: 20100610
  Receipt Date: 20100610
  Transmission Date: 20101027
  Serious: Yes (Hospitalization)
  Sender: FDA-Public Use
  Company Number: None

PATIENT
  Sex: Female
  Weight: 136.0791 kg

DRUGS (1)
  1. EMBEDA [Suspect]
     Indication: SPINAL FRACTURE
     Dosage: 1 PILL Q6 HRS PO
     Route: 048
     Dates: start: 20100215, end: 20100301

REACTIONS (6)
  - ASTHENIA [None]
  - COLONIC POLYP [None]
  - HAEMOGLOBIN DECREASED [None]
  - HAEMORRHAGE [None]
  - INTERNATIONAL NORMALISED RATIO INCREASED [None]
  - MELAENA [None]
